FAERS Safety Report 16269108 (Version 1)
Quarter: 2019Q2

REPORT INFORMATION
  Report Type: Spontaneous
  Country: DE (occurrence: DE)
  Receive Date: 20190503
  Receipt Date: 20190503
  Transmission Date: 20190711
  Serious: Yes (Other)
  Sender: FDA-Public Use
  Company Number: DE-ASTRAZENECA-2019SE64593

PATIENT
  Age: 71 Year
  Sex: Female
  Weight: 83 kg

DRUGS (9)
  1. PREDNISOLON [Concomitant]
     Active Substance: PREDNISOLONE
     Dosage: 4 MG DAILY, 2-0-0
  2. MAGNESIUM VERLA 400 [Concomitant]
     Dosage: 400.0MG UNKNOWN
  3. EUTHYROX [Concomitant]
     Active Substance: LEVOTHYROXINE SODIUM
     Dosage: 112UG/INHAL DAILY
  4. CANDESARTAN PLUS -1 A PHARMA [Concomitant]
  5. PREDNISOLON STADA [Concomitant]
     Active Substance: PREDNISOLONE
  6. OMEPRAZOL - 1A PHARMA [Concomitant]
  7. LERCANIDIPIN ACTAVIS [Concomitant]
     Active Substance: LERCANIDIPINE
  8. DEKRISTOL [Concomitant]
     Active Substance: CHOLECALCIFEROL
  9. ONGLYZA [Suspect]
     Active Substance: SAXAGLIPTIN HYDROCHLORIDE
     Indication: TYPE 2 DIABETES MELLITUS
     Dosage: 2.5MG ONCE/SINGLE ADMINISTRATION
     Route: 048
     Dates: start: 20190409, end: 20190409

REACTIONS (3)
  - Anuria [Recovered/Resolved]
  - Weight increased [Recovered/Resolved]
  - Oedema peripheral [Recovered/Resolved]

NARRATIVE: CASE EVENT DATE: 20190409
